FAERS Safety Report 6199471-2 (Version None)
Quarter: 2009Q2

REPORT INFORMATION
  Report Type: 
  Country: None (occurrence: None)
  Receive Date: 20090522
  Receipt Date: 20090512
  Transmission Date: 20091009
  Serious: Yes (Life-Threatening, Hospitalization, Other)
  Sender: FDA-Public Use
  Company Number: JP-PFIZER INC-2006063338

PATIENT
  Age: 57 Year

DRUGS (6)
  1. VFEND [Suspect]
     Indication: BRONCHOPULMONARY ASPERGILLOSIS
     Dosage: 270 MG, 2X/DAY
     Route: 042
     Dates: start: 20060425, end: 20060426
  2. VFEND [Suspect]
     Dosage: 180 MG, 2X/DAY
     Route: 042
     Dates: start: 20060426, end: 20060427
  3. VFEND [Suspect]
     Dosage: 360 MG, 1X/DAY
     Route: 042
     Dates: start: 20060427, end: 20060427
  4. VFEND [Suspect]
     Dosage: 180 MG, 2X/DAY
     Route: 042
     Dates: start: 20060428, end: 20060428
  5. MYSLEE [Suspect]
     Dosage: UNK
     Route: 048
     Dates: start: 20060408, end: 20060501
  6. MICAFUNGIN [Concomitant]
     Dosage: UNK
     Route: 042
     Dates: start: 20060406, end: 20060424

REACTIONS (8)
  - AMNESIA [None]
  - DEPRESSION [None]
  - DRUG ADMINISTRATION ERROR [None]
  - HALLUCINATION, AUDITORY [None]
  - HALLUCINATION, VISUAL [None]
  - MENTAL DISORDER [None]
  - PHOTOPHOBIA [None]
  - SELF INJURIOUS BEHAVIOUR [None]
